FAERS Safety Report 22000615 (Version 3)
Quarter: 2023Q2

REPORT INFORMATION
  Report Type: Spontaneous
  Country: US (occurrence: US)
  Receive Date: 20230216
  Receipt Date: 20230516
  Transmission Date: 20230722
  Serious: No
  Sender: FDA-Public Use
  Company Number: US-LUPIN PHARMACEUTICALS INC.-2023-01130

PATIENT

DRUGS (1)
  1. ACETAMINOPHEN\HYDROCODONE BITARTRATE [Suspect]
     Active Substance: ACETAMINOPHEN\HYDROCODONE BITARTRATE
     Indication: Pain
     Dosage: 1 DOSAGE FORM, BID
     Route: 048
     Dates: start: 20230202, end: 20230205

REACTIONS (7)
  - Dry mouth [Unknown]
  - Flushing [Unknown]
  - Feeling hot [Unknown]
  - Dizziness [Unknown]
  - Somnolence [Unknown]
  - Therapeutic product effect delayed [Unknown]
  - Product quality issue [Unknown]

NARRATIVE: CASE EVENT DATE: 20230205
